FAERS Safety Report 9790506 (Version 1)
Quarter: 2013Q4

REPORT INFORMATION
  Report Type: Spontaneous
  Country: NL (occurrence: NL)
  Receive Date: 20131231
  Receipt Date: 20131231
  Transmission Date: 20140711
  Serious: Yes (Other)
  Sender: FDA-Public Use
  Company Number: NL-BAXTER-2013BAX052646

PATIENT
  Age: 64 Year
  Sex: Female

DRUGS (9)
  1. ENDOXAN I.V., POEDER VOOR OPLOSSING VOOR INJECTIE 200, 500, 1000 MG [Suspect]
     Indication: BREAST CANCER
     Route: 042
  2. NATRIUMCHLORIDE 0,9% [Suspect]
     Indication: DEHYDRATION
  3. 5 FLUORO URACIL [Suspect]
     Indication: BREAST CANCER
     Route: 042
  4. EPIRUBICIN [Suspect]
     Indication: BREAST CANCER
     Route: 042
  5. CITALOPRAM [Suspect]
     Indication: DEPRESSION
  6. CITALOPRAM [Suspect]
  7. CITALOPRAM [Suspect]
  8. DEXAMETHASONE [Concomitant]
     Indication: ANTIEMETIC SUPPORTIVE CARE
     Route: 065
  9. ONDANSETRON [Concomitant]
     Indication: ANTIEMETIC SUPPORTIVE CARE
     Route: 065

REACTIONS (1)
  - Hyponatraemia [Recovered/Resolved]
